FAERS Safety Report 15449914 (Version 2)
Quarter: 2018Q4

REPORT INFORMATION
  Report Type: Spontaneous
  Country: JP (occurrence: JP)
  Receive Date: 20181001
  Receipt Date: 20181113
  Transmission Date: 20190204
  Serious: Yes (Life-Threatening, Other)
  Sender: FDA-Public Use
  Company Number: JP-HBP-2018JP017600

PATIENT
  Age: 51 Year
  Sex: Female
  Weight: 62 kg

DRUGS (10)
  1. ALOXI [Suspect]
     Active Substance: PALONOSETRON HYDROCHLORIDE
     Indication: PROPHYLAXIS OF NAUSEA AND VOMITING
     Dosage: 0.75 MILLIGRAM
     Route: 041
     Dates: start: 20180214, end: 20180904
  2. GEMCITABINE HYDROCHLORIDE. [Suspect]
     Active Substance: GEMCITABINE HYDROCHLORIDE
     Dosage: 1200 UNK
     Route: 041
     Dates: start: 20180314, end: 20180904
  3. GEMCITABINE HYDROCHLORIDE. [Suspect]
     Active Substance: GEMCITABINE HYDROCHLORIDE
     Indication: PANCREATIC CARCINOMA
     Dosage: 1500 MILLIGRAM, ON DAYS 1, 8, 15 OF EACH 35-DAY CYCLE
     Route: 041
     Dates: start: 20180214, end: 20180228
  4. ABRAXANE [Suspect]
     Active Substance: PACLITAXEL
     Dosage: 150 MILLIGRAM
     Route: 041
     Dates: start: 20180314, end: 20180904
  5. LOXOPROFEN SODIUM HYDRATE [Concomitant]
     Active Substance: LOXOPROFEN SODIUM DIHYDRATE
     Indication: PAIN
  6. PROEMEND [Suspect]
     Active Substance: FOSAPREPITANT
     Indication: PROPHYLAXIS OF NAUSEA AND VOMITING
     Dosage: 150 MILLIGRAM
     Route: 041
     Dates: start: 20180418, end: 20180904
  7. LOXOPROFEN SODIUM HYDRATE [Concomitant]
     Active Substance: LOXOPROFEN SODIUM DIHYDRATE
     Indication: HEADACHE
     Dosage: 120 MILLIGRAM, QD
     Route: 048
     Dates: start: 20180411, end: 20180904
  8. METOCLOPRAMIDE. [Concomitant]
     Active Substance: METOCLOPRAMIDE
     Indication: PROPHYLAXIS OF NAUSEA AND VOMITING
     Dosage: UNK
     Route: 048
     Dates: start: 20180215, end: 20180904
  9. ABRAXANE [Suspect]
     Active Substance: PACLITAXEL
     Indication: PANCREATIC CARCINOMA
     Dosage: 190 MILLIGRAM, ON DAYS 1, 8, 15 OF EACH 35-DAY CYCLE
     Route: 041
     Dates: start: 20180214, end: 20180228
  10. NEXIUM [Concomitant]
     Active Substance: ESOMEPRAZOLE MAGNESIUM
     Indication: PROPHYLAXIS
     Dosage: 20 MILLIGRAM, QD
     Route: 048
     Dates: start: 20180214, end: 20180904

REACTIONS (5)
  - Oedema peripheral [Recovering/Resolving]
  - Ventricular fibrillation [Recovered/Resolved]
  - Cardiac failure acute [Recovered/Resolved with Sequelae]
  - Electrocardiogram QT prolonged [Recovering/Resolving]
  - Torsade de pointes [Recovered/Resolved]

NARRATIVE: CASE EVENT DATE: 20180516
